FAERS Safety Report 8181587-2 (Version None)
Quarter: 2012Q1

REPORT INFORMATION
  Report Type: 
  Country: None (occurrence: None)
  Receive Date: 20120302
  Receipt Date: 20120222
  Transmission Date: 20120608
  Serious: Yes (Death, Hospitalization, Other)
  Sender: FDA-Public Use
  Company Number: BE-ELI_LILLY_AND_COMPANY-BE201202006587

PATIENT
  Sex: Female

DRUGS (1)
  1. FORTEO [Suspect]
     Dosage: UNK
     Dates: start: 20110506, end: 20120216

REACTIONS (11)
  - GENERAL PHYSICAL HEALTH DETERIORATION [None]
  - DECREASED APPETITE [None]
  - VOMITING [None]
  - HEAD INJURY [None]
  - LUNG INFECTION [None]
  - FALL [None]
  - PRODUCTIVE COUGH [None]
  - DEATH [None]
  - INCONTINENCE [None]
  - MUSCULOSKELETAL PAIN [None]
  - DIARRHOEA [None]
